FAERS Safety Report 16294885 (Version 1)
Quarter: 2019Q2

REPORT INFORMATION
  Report Type: Spontaneous
  Country: US (occurrence: US)
  Receive Date: 20190509
  Receipt Date: 20190509
  Transmission Date: 20190711
  Serious: No
  Sender: FDA-Public Use
  Company Number: US-ROCHE-2258410

PATIENT
  Age: 67 Year
  Sex: Female
  Weight: 70.82 kg

DRUGS (3)
  1. ESBRIET [Suspect]
     Active Substance: PIRFENIDONE
     Dosage: TWO PILLS THREE TIMES A DAY ;ONGOING: NO
     Route: 065
  2. ESBRIET [Suspect]
     Active Substance: PIRFENIDONE
     Dosage: THREE PILLS THREE TIMES A DAY ;ONGOING: NO
     Route: 065
     Dates: end: 20190121
  3. ESBRIET [Suspect]
     Active Substance: PIRFENIDONE
     Indication: PULMONARY FIBROSIS
     Dosage: ONE PILL THREE TIMES A DAY ;ONGOING: NO
     Route: 065
     Dates: start: 20181231

REACTIONS (6)
  - Diarrhoea [Recovered/Resolved]
  - Asthenia [Recovered/Resolved]
  - Nausea [Recovered/Resolved]
  - Depression [Recovered/Resolved]
  - Irritability [Recovered/Resolved]
  - Abdominal pain upper [Recovered/Resolved]

NARRATIVE: CASE EVENT DATE: 201901
